FAERS Safety Report 4322687-4 (Version None)
Quarter: 2004Q1

REPORT INFORMATION
  Report Type: 
  Country: None (occurrence: None)
  Receive Date: 20040319
  Receipt Date: 20040311
  Transmission Date: 20041129
  Serious: Yes (Death, Hospitalization, Other)
  Sender: FDA-Public Use
  Company Number: DE-JNJFOC-20031202741

PATIENT
  Age: 37 Year
  Sex: Female
  Weight: 73 kg

DRUGS (3)
  1. CAELYX (DOXORUBICIN HYDROCHLORIDE) LIPOSOME INJECTION [Suspect]
     Indication: CERVIX CARCINOMA
     Dosage: 74.4 MG, INTRAVENOUS
     Route: 042
     Dates: start: 20031020, end: 20031020
  2. CARBOPLATIN [Suspect]
     Indication: CERVIX CARCINOMA
     Dosage: 696 MG, INTRAVENOUS
     Route: 042
     Dates: start: 20031020, end: 20031020
  3. MORPHINE SUL INJ [Concomitant]

REACTIONS (8)
  - BLOOD CREATININE INCREASED [None]
  - C-REACTIVE PROTEIN INCREASED [None]
  - DISEASE PROGRESSION [None]
  - FAILURE OF IMPLANT [None]
  - GENERAL PHYSICAL HEALTH DETERIORATION [None]
  - LYMPHOEDEMA [None]
  - PANCYTOPENIA [None]
  - URETERIC STENOSIS [None]
